FAERS Safety Report 9298874 (Version 1)
Quarter: 2013Q2

REPORT INFORMATION
  Report Type: Spontaneous
  Country: US (occurrence: US)
  Receive Date: 20130520
  Receipt Date: 20130520
  Transmission Date: 20140414
  Serious: No
  Sender: FDA-Public Use
  Company Number: US-SANOFI-AVENTIS-2012SA032797

PATIENT
  Age: 36 Year
  Sex: Female

DRUGS (3)
  1. LANTUS [Suspect]
     Indication: DIABETES MELLITUS
     Dosage: DOSE:40 UNIT(S)
     Route: 058
     Dates: start: 20120503
  2. SOLOSTAR [Suspect]
     Indication: DIABETES MELLITUS
     Dates: start: 20120503
  3. APIDRA [Suspect]
     Indication: DIABETES MELLITUS
     Dosage: DOSAGE: WITH MEALS DOSE:10 UNIT(S)
     Route: 058
     Dates: start: 20120503

REACTIONS (3)
  - Fluid retention [Not Recovered/Not Resolved]
  - Weight increased [Not Recovered/Not Resolved]
  - Blood glucose increased [Not Recovered/Not Resolved]
